FAERS Safety Report 21252603 (Version 1)
Quarter: 2022Q3

REPORT INFORMATION
  Report Type: Spontaneous
  Country: US (occurrence: None)
  Receive Date: 20220825
  Receipt Date: 20220825
  Transmission Date: 20221027
  Serious: Yes (Hospitalization)
  Sender: FDA-Public Use
  Company Number: US-ROCHE-3164106

PATIENT
  Age: 46 Year
  Sex: Female

DRUGS (3)
  1. OCREVUS [Suspect]
     Active Substance: OCRELIZUMAB
     Indication: Multiple sclerosis
     Route: 065
     Dates: start: 201806
  2. OCREVUS [Suspect]
     Active Substance: OCRELIZUMAB
     Route: 065
     Dates: start: 202011
  3. USTEKINUMAB [Concomitant]
     Active Substance: USTEKINUMAB

REACTIONS (2)
  - Colitis [Unknown]
  - B-lymphocyte count decreased [Unknown]

NARRATIVE: CASE EVENT DATE: 20200401
